FAERS Safety Report 7759228-5 (Version None)
Quarter: 2011Q3

REPORT INFORMATION
  Report Type: 
  Country: None (occurrence: None)
  Receive Date: 20110919
  Receipt Date: 20110912
  Transmission Date: 20111222
  Serious: Yes (Life-Threatening)
  Sender: FDA-Public Use
  Company Number: GB-TEVA-300079ISR

PATIENT
  Age: 86 Year
  Sex: Female

DRUGS (2)
  1. ALENDRONIC ACID [Concomitant]
     Route: 048
     Dates: start: 20110501, end: 20110902
  2. ENALAPRIL MALEATE [Suspect]
     Route: 048
     Dates: start: 20070101

REACTIONS (1)
  - GUILLAIN-BARRE SYNDROME [None]
